FAERS Safety Report 7459598-1 (Version None)
Quarter: 2011Q2

REPORT INFORMATION
  Report Type: 
  Country: None (occurrence: None)
  Receive Date: 20110505
  Receipt Date: 20110421
  Transmission Date: 20111010
  Serious: Yes (Hospitalization)
  Sender: FDA-Public Use
  Company Number: CA-JNJFOC-20110409804

PATIENT
  Sex: Male
  Weight: 68 kg

DRUGS (2)
  1. HYDROCORTISONE [Concomitant]
     Indication: PREMEDICATION
  2. REMICADE [Suspect]
     Indication: PRODUCT USED FOR UNKNOWN INDICATION
     Route: 042

REACTIONS (1)
  - OBSTRUCTION [None]
